FAERS Safety Report 4340886-2 (Version None)
Quarter: 2004Q2

REPORT INFORMATION
  Report Type: 
  Country: None (occurrence: None)
  Receive Date: 20040413
  Receipt Date: 20040401
  Transmission Date: 20050107
  Serious: Yes (Death)
  Sender: FDA-Public Use
  Company Number: 163-20785-03110259

PATIENT
  Age: 53 Year
  Sex: Female

DRUGS (1)
  1. THALOMID (THALIDOMIDE) (200 MILLIGRA, CAPSULES) [Suspect]
     Indication: SARCOMA
     Dosage: 200 MG, DAILY, ORAL
     Route: 048
     Dates: start: 20030428, end: 20030804

REACTIONS (4)
  - MALIGNANT NEOPLASM PROGRESSION [None]
  - METASTASIS [None]
  - METASTATIC NEOPLASM [None]
  - SARCOMA [None]
